FAERS Safety Report 10152203 (Version 2)
Quarter: 2014Q2

REPORT INFORMATION
  Report Type: Spontaneous
  Country: GB (occurrence: None)
  Receive Date: 20140501
  Receipt Date: 20140512
  Transmission Date: 20141212
  Serious: Yes (Other)
  Sender: FDA-Public Use
  Company Number: KAD201404-000435

PATIENT
  Age: 28 Year
  Sex: Male

DRUGS (5)
  1. RIBAVIRIN [Suspect]
     Indication: HEPATITIS C
     Route: 048
     Dates: start: 20140331, end: 20140411
  2. INTERFERON ALFACON-1 [Suspect]
     Indication: HEPATITIS C
     Dates: start: 20140331
  3. INTERFERON GAMMA-1B [Suspect]
     Indication: HEPATITIS C
     Dates: start: 20140331, end: 20140407
  4. ZAPONEX [Suspect]
     Indication: SCHIZOPHRENIA
     Route: 048
     Dates: start: 20120207
  5. LITHIUM [Concomitant]

REACTIONS (2)
  - Hepatitis C [None]
  - Neutrophil count decreased [None]
